FAERS Safety Report 22303670 (Version 5)
Quarter: 2024Q2

REPORT INFORMATION
  Report Type: Spontaneous
  Country: US (occurrence: US)
  Receive Date: 20230510
  Receipt Date: 20240606
  Transmission Date: 20240715
  Serious: Yes (Other)
  Sender: FDA-Public Use
  Company Number: US-PFIZER INC-PV202300081840

PATIENT
  Age: 68 Year
  Sex: Male

DRUGS (2)
  1. BOSULIF [Suspect]
     Active Substance: BOSUTINIB MONOHYDRATE
     Indication: Neoplasm malignant
     Dosage: 400 MG, 2X/DAY (10AM AND AROUND 6 OR 7PM)
  2. BOSULIF [Suspect]
     Active Substance: BOSUTINIB MONOHYDRATE
     Dosage: TAKE 400 MG BY MOUTH DAILY
     Route: 048

REACTIONS (3)
  - Diabetes mellitus [Unknown]
  - Vomiting [Unknown]
  - Diarrhoea [Unknown]
